FAERS Safety Report 25862078 (Version 1)
Quarter: 2025Q3

REPORT INFORMATION
  Report Type: Spontaneous
  Country: CN (occurrence: CN)
  Receive Date: 20250930
  Receipt Date: 20250930
  Transmission Date: 20251021
  Serious: Yes (Hospitalization, Other)
  Sender: SANOFI AVENTIS
  Company Number: CN-SA-2025SA286897

PATIENT
  Age: 67 Year
  Sex: Male
  Weight: 62.5 kg

DRUGS (2)
  1. CLOPIDOGREL BISULFATE [Suspect]
     Active Substance: CLOPIDOGREL BISULFATE
     Indication: Anticoagulant therapy
     Dosage: 75 MG, QD
     Route: 048
     Dates: start: 20250509, end: 20250912
  2. INDOBUFEN [Suspect]
     Active Substance: INDOBUFEN
     Indication: Anticoagulant therapy
     Dosage: 0.1 G, BID
     Route: 048
     Dates: start: 20250509, end: 20250912

REACTIONS (2)
  - Syncope [Unknown]
  - Melaena [Recovering/Resolving]

NARRATIVE: CASE EVENT DATE: 20250809
